FAERS Safety Report 10671584 (Version 1)
Quarter: 2014Q4

REPORT INFORMATION
  Report Type: Spontaneous
  Country: CO (occurrence: None)
  Receive Date: 20141222
  Receipt Date: 20141222
  Transmission Date: 20150529
  Serious: No
  Sender: FDA-Public Use
  Company Number: None

PATIENT
  Age: 17 Year
  Sex: Female
  Weight: 55 kg

DRUGS (1)
  1. DOSTINEX [Suspect]
     Active Substance: CABERGOLINE
     Indication: PITUITARY TUMOUR BENIGN
     Dosage: 1/2 PILL, TWICE A WEEK, TAKEN BY MOUTH
     Route: 048

REACTIONS (4)
  - Dizziness [None]
  - Pain in extremity [None]
  - Asthenia [None]
  - Depression [None]

NARRATIVE: CASE EVENT DATE: 20141127
